FAERS Safety Report 7525441-5 (Version None)
Quarter: 2011Q2

REPORT INFORMATION
  Report Type: 
  Country: None (occurrence: None)
  Receive Date: 20110526
  Receipt Date: 20110512
  Transmission Date: 20111010
  Serious: Yes (Other)
  Sender: FDA-Public Use
  Company Number: 2011MA006047

PATIENT
  Age: 29 Year
  Sex: Male

DRUGS (5)
  1. MIRTAZAPINE [Suspect]
     Indication: DEPRESSION
     Dosage: 30 MG;BID
  2. DIAZEPAM [Suspect]
     Indication: PRODUCT USED FOR UNKNOWN INDICATION
     Dosage: 5 MG;QD
  3. RITALIN [Concomitant]
  4. ZOPICLONE (ZOPICLONIE) [Suspect]
     Indication: INSOMNIA
     Dosage: 3.75 MG;QD
  5. OMEPRAZOLE [Suspect]
     Indication: PRODUCT USED FOR UNKNOWN INDICATION
     Dosage: 20 MG;QD

REACTIONS (5)
  - EMOTIONAL DISORDER [None]
  - CONFUSIONAL STATE [None]
  - NAUSEA [None]
  - DEPRESSED MOOD [None]
  - DISTURBANCE IN ATTENTION [None]
